FAERS Safety Report 7038890-9 (Version None)
Quarter: 2010Q4

REPORT INFORMATION
  Report Type: 
  Country: None (occurrence: None)
  Receive Date: 20101012
  Receipt Date: 20100930
  Transmission Date: 20110411
  Serious: Yes (Other)
  Sender: FDA-Public Use
  Company Number: US-BAYER-201036016NA

PATIENT
  Sex: Female

DRUGS (2)
  1. MIRENA [Suspect]
     Indication: CONTRACEPTION
     Route: 015
     Dates: start: 20060801, end: 20100201
  2. MIRENA [Suspect]
     Route: 015
     Dates: start: 20100101

REACTIONS (3)
  - ABDOMINAL PAIN UPPER [None]
  - DEVICE DISLOCATION [None]
  - PROCEDURAL PAIN [None]
